FAERS Safety Report 17761678 (Version 1)
Quarter: 2020Q2

REPORT INFORMATION
  Report Type: Spontaneous
  Country: FR (occurrence: FR)
  Receive Date: 20200508
  Receipt Date: 20200508
  Transmission Date: 20200714
  Serious: Yes (Life-Threatening)
  Sender: FDA-Public Use
  Company Number: FR-CADILA HEALTHCARE LIMITED-FR-ZYDUS-025385

PATIENT

DRUGS (6)
  1. ESOMEPRAZOLE. [Suspect]
     Active Substance: ESOMEPRAZOLE MAGNESIUM
     Indication: TOXICITY TO VARIOUS AGENTS
     Dosage: 21 DOSAGE FORM
     Route: 048
  2. LERCAN [Suspect]
     Active Substance: LERCANIDIPINE
     Indication: TOXICITY TO VARIOUS AGENTS
     Dosage: 45 DOSAGE FORM
     Route: 048
     Dates: start: 20180722
  3. PARACETAMOL [Suspect]
     Active Substance: ACETAMINOPHEN
     Indication: TOXICITY TO VARIOUS AGENTS
     Dosage: 12 DOSAGE FORM
     Route: 048
     Dates: start: 20180722
  4. SPIRONOLACTONE. [Suspect]
     Active Substance: SPIRONOLACTONE
     Indication: TOXICITY TO VARIOUS AGENTS
     Dosage: 60 DOSAGE FORM
     Route: 048
  5. IRBESARTAN. [Suspect]
     Active Substance: IRBESARTAN
     Indication: TOXICITY TO VARIOUS AGENTS
     Dosage: 60 DOSAGE FORM
     Route: 048
  6. ATARAX [Suspect]
     Active Substance: HYDROXYZINE HYDROCHLORIDE
     Indication: TOXICITY TO VARIOUS AGENTS
     Dosage: 10 DOSAGE FORM
     Route: 048

REACTIONS (5)
  - Toxicity to various agents [Recovering/Resolving]
  - Vasoplegia syndrome [Recovering/Resolving]
  - Renal failure [Recovered/Resolved]
  - Lactic acidosis [Recovered/Resolved]
  - Hypotension [Recovering/Resolving]

NARRATIVE: CASE EVENT DATE: 20180722
